FAERS Safety Report 18245158 (Version 1)
Quarter: 2020Q3

REPORT INFORMATION
  Report Type: Spontaneous
  Country: BR (occurrence: BR)
  Receive Date: 20200908
  Receipt Date: 20200908
  Transmission Date: 20201103
  Serious: Yes (Other)
  Sender: FDA-Public Use
  Company Number: BR-ROCHE-2672400

PATIENT
  Sex: Female

DRUGS (3)
  1. RIVOTRIL [Suspect]
     Active Substance: CLONAZEPAM
     Indication: EMOTIONAL DISTRESS
     Route: 065
  2. RIVOTRIL [Suspect]
     Active Substance: CLONAZEPAM
     Indication: SLEEP DISORDER
  3. RIVOTRIL [Suspect]
     Active Substance: CLONAZEPAM
     Indication: PANIC ATTACK

REACTIONS (4)
  - Off label use [Unknown]
  - Plasma cell myeloma [Recovering/Resolving]
  - Product packaging quantity issue [Unknown]
  - Intentional product use issue [Unknown]
